FAERS Safety Report 20876145 (Version 1)
Quarter: 2022Q2

REPORT INFORMATION
  Report Type: Spontaneous
  Country: US (occurrence: US)
  Receive Date: 20220526
  Receipt Date: 20220526
  Transmission Date: 20220720
  Serious: No
  Sender: FDA-Public Use
  Company Number: US-NOVEN PHARMACEUTICALS, INC.-2021-NOV-US003874

PATIENT
  Age: 12 Year
  Sex: Male

DRUGS (1)
  1. DAYTRANA [Suspect]
     Active Substance: METHYLPHENIDATE
     Indication: Attention deficit hyperactivity disorder
     Dosage: 10 MG/9 HOURS, UNKNOWN
     Route: 062
     Dates: start: 20211023

REACTIONS (9)
  - Therapeutic product effect incomplete [Recovered/Resolved]
  - Adhesive tape use [Recovered/Resolved]
  - Product storage error [Recovered/Resolved]
  - Product administration error [Recovered/Resolved]
  - Incorrect dose administered by device [Recovered/Resolved]
  - Device difficult to use [Recovered/Resolved]
  - Device adhesion issue [Recovered/Resolved]
  - Product adhesion issue [Recovered/Resolved]
  - Device breakage [Not Recovered/Not Resolved]

NARRATIVE: CASE EVENT DATE: 20211001
